FAERS Safety Report 16840538 (Version 2)
Quarter: 2020Q1

REPORT INFORMATION
  Report Type: Spontaneous
  Country: GB (occurrence: GB)
  Receive Date: 20190923
  Receipt Date: 20200122
  Transmission Date: 20200409
  Serious: Yes (Other)
  Sender: FDA-Public Use
  Company Number: PHHY2019GB215982

PATIENT
  Sex: Male

DRUGS (2)
  1. MAXIDEX [Suspect]
     Active Substance: DEXAMETHASONE
     Indication: CATARACT
     Dosage: UNK UNK, QD
     Route: 065
     Dates: start: 20161117
  2. KENALOG [Suspect]
     Active Substance: TRIAMCINOLONE ACETONIDE
     Indication: CYSTOID MACULAR OEDEMA
     Dosage: UNK
     Route: 047
     Dates: start: 20170509, end: 20180517

REACTIONS (14)
  - Macular oedema [Unknown]
  - Adverse event [Unknown]
  - Intentional product use issue [Unknown]
  - Abdominal distension [Unknown]
  - Hypertension [Unknown]
  - Intraocular pressure increased [Unknown]
  - Cellulitis [Unknown]
  - Uveitis [Unknown]
  - Chest pain [Unknown]
  - Amnesia [Unknown]
  - Blindness unilateral [Unknown]
  - Myocardial infarction [Unknown]
  - Hyperglycaemia [Unknown]
  - Cushing^s syndrome [Unknown]

NARRATIVE: CASE EVENT DATE: 20170522
